FAERS Safety Report 4745324-3 (Version None)
Quarter: 2005Q3

REPORT INFORMATION
  Report Type: 
  Country: None (occurrence: None)
  Receive Date: 20050812
  Receipt Date: 20050804
  Transmission Date: 20060218
  Serious: Yes (Other)
  Sender: FDA-Public Use
  Company Number: TCI2005A03489

PATIENT
  Age: 76 Year
  Sex: Male

DRUGS (4)
  1. ACTOS [Suspect]
     Indication: DIABETES MELLITUS
     Dosage: 30 MG (30 MG , 1 D), PER ORAL
     Route: 048
     Dates: start: 20050301
  2. EUGLUCON (GLIBENCLAMIDE) [Suspect]
     Dosage: PER ORAL
     Route: 048
  3. GLUCOBAY [Suspect]
     Dosage: PER ORAL
     Route: 048
  4. METFORMIN HYDROCHLORIDE [Suspect]
     Dosage: PER ORAL
     Route: 048

REACTIONS (2)
  - INTERSTITIAL LUNG DISEASE [None]
  - UNEVALUABLE EVENT [None]
